FAERS Safety Report 4515322-3 (Version None)
Quarter: 2004Q4

REPORT INFORMATION
  Report Type: 
  Country: None (occurrence: None)
  Receive Date: 20041126
  Receipt Date: 20041112
  Transmission Date: 20050328
  Serious: Yes (Other)
  Sender: FDA-Public Use
  Company Number: 2004092576

PATIENT
  Age: 32 Year
  Sex: Male

DRUGS (1)
  1. ZITHROMAX [Suspect]
     Indication: URETHRITIS CHLAMYDIAL
     Dosage: 1000 MG (1000 MG, ONCE), ORAL
     Route: 048
     Dates: start: 20041111, end: 20041111

REACTIONS (8)
  - ALANINE AMINOTRANSFERASE INCREASED [None]
  - ASPARTATE AMINOTRANSFERASE INCREASED [None]
  - BLOOD PRESSURE INCREASED [None]
  - DYSPNOEA [None]
  - ERYTHEMA [None]
  - EXANTHEM [None]
  - PALPITATIONS [None]
  - PYREXIA [None]
